FAERS Safety Report 9881949 (Version 1)
Quarter: 2014Q1

REPORT INFORMATION
  Report Type: Spontaneous
  Country: US (occurrence: US)
  Receive Date: 20140207
  Receipt Date: 20140207
  Transmission Date: 20141002
  Serious: Yes (Other)
  Sender: FDA-Public Use
  Company Number: PHEH2014US002319

PATIENT
  Sex: Female

DRUGS (1)
  1. ZORTRESS [Suspect]
     Indication: RENAL AND PANCREAS TRANSPLANT
     Dosage: UNK UKN, UNK

REACTIONS (1)
  - Thrombosis [Unknown]
